FAERS Safety Report 13063582 (Version 1)
Quarter: 2016Q4

REPORT INFORMATION
  Report Type: Spontaneous
  Country: US (occurrence: US)
  Receive Date: 20161227
  Receipt Date: 20161227
  Transmission Date: 20170207
  Serious: Yes (Other)
  Sender: FDA-Public Use
  Company Number: US-ASTRAZENECA-2016SF34454

PATIENT
  Sex: Male

DRUGS (11)
  1. SINGULAIR [Concomitant]
     Active Substance: MONTELUKAST SODIUM
     Route: 048
  2. INLYTA [Suspect]
     Active Substance: AXITINIB
     Indication: PULMONARY EMBOLISM
     Route: 048
  3. PROTONIX [Suspect]
     Active Substance: PANTOPRAZOLE SODIUM
     Route: 048
  4. KRILL-OMEGA-3-DHA-EPA LIPIDS [Concomitant]
  5. INLYTA [Suspect]
     Active Substance: AXITINIB
     Indication: RENAL CELL CARCINOMA
     Route: 048
  6. OMEPRAZOLE. [Suspect]
     Active Substance: OMEPRAZOLE
     Route: 048
  7. MULTIVITAMIN [Concomitant]
     Active Substance: VITAMINS
     Route: 048
  8. LYRICA [Suspect]
     Active Substance: PREGABALIN
     Route: 065
  9. CHOLECALCIFEROL [Concomitant]
     Active Substance: CHOLECALCIFEROL
     Route: 048
  10. TIOTROPIUM BROMIDE [Concomitant]
     Active Substance: TIOTROPIUM BROMIDE
     Dosage: INHALE THOUGH MOUTH
  11. ELIQUIS [Suspect]
     Active Substance: APIXABAN
     Route: 065

REACTIONS (5)
  - Diarrhoea [Unknown]
  - Renal cell carcinoma [Unknown]
  - Pulmonary embolism [Unknown]
  - Drug hypersensitivity [Unknown]
  - Metastases to pancreas [Unknown]
